FAERS Safety Report 5571410-4 (Version None)
Quarter: 2007Q4

REPORT INFORMATION
  Report Type: 
  Country: None (occurrence: None)
  Receive Date: 20071221
  Receipt Date: 20071212
  Transmission Date: 20080405
  Serious: No
  Sender: FDA-Public Use
  Company Number: A0689612A

PATIENT
  Sex: Female
  Weight: 68.2 kg

DRUGS (4)
  1. FLUTICASONE PROPIONATE [Suspect]
     Indication: MULTIPLE ALLERGIES
     Route: 045
  2. VIBRAMYCIN [Concomitant]
     Dosage: 100MG TWICE PER DAY
     Route: 048
     Dates: start: 20071001
  3. FLOVENT [Concomitant]
  4. ALBUTEROL [Concomitant]

REACTIONS (5)
  - DRUG INEFFECTIVE [None]
  - OEDEMA MUCOSAL [None]
  - PHARMACEUTICAL PRODUCT COMPLAINT [None]
  - RESPIRATION ABNORMAL [None]
  - SINUSITIS [None]
